FAERS Safety Report 23474005 (Version 1)
Quarter: 2024Q1

REPORT INFORMATION
  Report Type: Spontaneous
  Country: US (occurrence: None)
  Receive Date: 20240204
  Receipt Date: 20240204
  Transmission Date: 20240409
  Serious: No
  Sender: FDA-Public Use
  Company Number: 2024A026093

PATIENT

DRUGS (1)
  1. FASENRA [Suspect]
     Active Substance: BENRALIZUMAB
     Route: 058
     Dates: start: 20240131

REACTIONS (4)
  - Administration site pain [Unknown]
  - Injury associated with device [Unknown]
  - Incorrect dose administered [Unknown]
  - Device use issue [Unknown]
